FAERS Safety Report 12192910 (Version 1)
Quarter: 2016Q1

REPORT INFORMATION
  Report Type: Spontaneous
  Country: US (occurrence: US)
  Receive Date: 20160318
  Receipt Date: 20160318
  Transmission Date: 20160526
  Serious: No
  Sender: FDA-Public Use
  Company Number: US-CUMBERLAND PHARMACEUTICALS INC.-1049331

PATIENT
  Sex: Female

DRUGS (1)
  1. INTRAVENOUS ACETYLCYSTEINE UNKNOWN MFR [Suspect]
     Active Substance: ACETYLCYSTEINE
     Route: 042

REACTIONS (1)
  - Urticaria [None]
